FAERS Safety Report 6345818-3 (Version None)
Quarter: 2009Q3

REPORT INFORMATION
  Report Type: 
  Country: None (occurrence: None)
  Receive Date: 20090909
  Receipt Date: 20090831
  Transmission Date: 20100115
  Serious: Yes (Hospitalization, Congenital Anomaly)
  Sender: FDA-Public Use
  Company Number: A0681513A

PATIENT
  Sex: Male

DRUGS (5)
  1. PAXIL [Suspect]
     Indication: PANIC DISORDER
     Dosage: 20MG PER DAY
     Dates: start: 20010101, end: 20060401
  2. PAROXETINE HCL [Suspect]
     Indication: PANIC DISORDER
     Dosage: 20MG PER DAY
     Dates: start: 20051101, end: 20060201
  3. VITAMIN TAB [Concomitant]
     Dosage: 1TAB PER DAY
  4. ZOLOFT [Concomitant]
  5. XANAX [Concomitant]

REACTIONS (3)
  - CONGENITAL ANOMALY [None]
  - DRUG EXPOSURE DURING PREGNANCY [None]
  - PYLORIC STENOSIS [None]
